FAERS Safety Report 5886423-2 (Version None)
Quarter: 2008Q3

REPORT INFORMATION
  Report Type: 
  Country: None (occurrence: None)
  Receive Date: 20080917
  Receipt Date: 20080611
  Transmission Date: 20090109
  Serious: No
  Sender: FDA-Public Use
  Company Number: US-BAYER-200811659BCC

PATIENT
  Age: 20 Year
  Sex: Female
  Weight: 68 kg

DRUGS (1)
  1. ALEVE (CAPLET) [Suspect]
     Indication: HEADACHE
     Dosage: AS USED: 440 MG  UNIT DOSE: 220 MG
     Route: 048
     Dates: start: 20080425

REACTIONS (4)
  - NASAL DISCOMFORT [None]
  - RETCHING [None]
  - RHINORRHOEA [None]
  - THROAT IRRITATION [None]
